FAERS Safety Report 18074268 (Version 4)
Quarter: 2020Q4

REPORT INFORMATION
  Report Type: Spontaneous
  Country: US (occurrence: US)
  Receive Date: 20200727
  Receipt Date: 20201208
  Transmission Date: 20210113
  Serious: Yes (Hospitalization, Other)
  Sender: FDA-Public Use
  Company Number: US-PFIZER INC-2020282595

PATIENT
  Age: 48 Year
  Sex: Female
  Weight: 90.72 kg

DRUGS (14)
  1. TIZANIDINE. [Concomitant]
     Active Substance: TIZANIDINE
     Indication: SPINAL STENOSIS
  2. LYRICA [Suspect]
     Active Substance: PREGABALIN
     Indication: PAIN
     Dosage: 50 MG, 1X/DAY (50MG NIGHTLY)
  3. METOPROLOL. [Concomitant]
     Active Substance: METOPROLOL
     Indication: CARDIAC DISORDER
     Dosage: 12.5 MG, 2X/DAY
  4. METOPROLOL. [Concomitant]
     Active Substance: METOPROLOL
     Dosage: 50 MG, DAILY
  5. LISINOPRIL HCTZ [Concomitant]
     Active Substance: HYDROCHLOROTHIAZIDE\LISINOPRIL
     Indication: BLOOD PRESSURE ABNORMAL
     Dosage: UNK, 1X/DAY (20-25MG ONCE DAILY)
  6. KLONOPIN [Concomitant]
     Active Substance: CLONAZEPAM
     Indication: SLEEP DISORDER
  7. KLONOPIN [Concomitant]
     Active Substance: CLONAZEPAM
     Indication: POST-TRAUMATIC STRESS DISORDER
     Dosage: 1 MG, 1X/DAY (1MG AT BEDTIME)
  8. NORCO [Concomitant]
     Active Substance: ACETAMINOPHEN\HYDROCODONE BITARTRATE
     Indication: BACK INJURY
     Dosage: 7.5 MG, 2X/DAY
  9. LYRICA [Suspect]
     Active Substance: PREGABALIN
     Indication: NEUROPATHY PERIPHERAL
     Dosage: 300 MG, 2X/DAY (INCREASED EVENTUALLY TO 300MG TWICE DAILY)
     Route: 048
  10. AMBIEN [Concomitant]
     Active Substance: ZOLPIDEM TARTRATE
     Indication: INSOMNIA
     Dosage: 12 MG, 1X/DAY (12MG AT BEDTIME)
     Dates: end: 2020
  11. TIZANIDINE. [Concomitant]
     Active Substance: TIZANIDINE
     Indication: BACK INJURY
     Dosage: 4 MG, 2X/DAY
  12. PHENERGAN [Concomitant]
     Active Substance: PROMETHAZINE HYDROCHLORIDE
     Indication: VOMITING
     Dosage: 25 MG, 2X/DAY (25MG TWICE A DAY WITH THE NORCO)
  13. KLONOPIN [Concomitant]
     Active Substance: CLONAZEPAM
     Indication: PANIC ATTACK
  14. LYRICA [Suspect]
     Active Substance: PREGABALIN
     Dosage: 75 MG, 2X/DAY
     Route: 048

REACTIONS (48)
  - Cholangitis [Unknown]
  - Seizure [Unknown]
  - Weight increased [Unknown]
  - Bone disorder [Unknown]
  - Speech disorder [Unknown]
  - Bone pain [Unknown]
  - Feeling abnormal [Unknown]
  - Illness [Unknown]
  - Onycholysis [Unknown]
  - Abdominal pain upper [Unknown]
  - Memory impairment [Unknown]
  - Ageusia [Unknown]
  - Pain [Unknown]
  - Visual impairment [Unknown]
  - Anorgasmia [Unknown]
  - Blood folate decreased [Unknown]
  - Anxiety [Unknown]
  - Dysphagia [Unknown]
  - Alopecia [Unknown]
  - Feeling cold [Unknown]
  - Hyperhidrosis [Unknown]
  - Urinary tract infection [Unknown]
  - Muscle atrophy [Unknown]
  - Depression [Unknown]
  - Drug dependence [Unknown]
  - Mood swings [Unknown]
  - Abdominal pain upper [Unknown]
  - Vitamin B12 decreased [Unknown]
  - Bipolar disorder [Unknown]
  - Dysphemia [Unknown]
  - Muscle spasms [Unknown]
  - Dehydration [Unknown]
  - Condition aggravated [Unknown]
  - Insomnia [Unknown]
  - Tinnitus [Unknown]
  - Anaemia [Unknown]
  - Gastrointestinal motility disorder [Unknown]
  - Decreased appetite [Unknown]
  - Blood iron decreased [Unknown]
  - Depressed mood [Unknown]
  - Cognitive disorder [Unknown]
  - Palpitations [Unknown]
  - Pancreatic disorder [Unknown]
  - Deafness [Unknown]
  - Vitamin D decreased [Unknown]
  - Tooth loss [Unknown]
  - Mental disorder [Unknown]
  - Dyspnoea [Unknown]

NARRATIVE: CASE EVENT DATE: 2019
